FAERS Safety Report 9358695 (Version 1)
Quarter: 2013Q2

REPORT INFORMATION
  Report Type: Spontaneous
  Country: JP (occurrence: JP)
  Receive Date: 20130620
  Receipt Date: 20130620
  Transmission Date: 20140414
  Serious: Yes (Other)
  Sender: FDA-Public Use
  Company Number: JP-GLAXOSMITHKLINE-B0900066A

PATIENT
  Sex: Female

DRUGS (1)
  1. FLUTIDE DISKUS [Suspect]
     Indication: PRODUCT USED FOR UNKNOWN INDICATION
     Route: 055
     Dates: start: 201211

REACTIONS (5)
  - Gastric haemorrhage [Unknown]
  - Aphagia [Unknown]
  - Abdominal pain upper [Unknown]
  - Weight decreased [Unknown]
  - Emotional distress [Unknown]
